FAERS Safety Report 26160809 (Version 1)
Quarter: 2025Q4

REPORT INFORMATION
  Report Type: Report from Study
  Country: GB (occurrence: GB)
  Receive Date: 20251216
  Receipt Date: 20251216
  Transmission Date: 20260118
  Serious: Yes (Other)
  Sender: CELLTRION
  Company Number: GB-CELLTRION INC.-2025GB044763

PATIENT

DRUGS (2)
  1. ADALIMUMAB-AATY [Suspect]
     Active Substance: ADALIMUMAB-AATY
     Indication: Crohn^s disease
     Dosage: 40 MG PF EVERY 2 WEEKS
     Route: 058
     Dates: start: 202503
  2. ADALIMUMAB-AATY [Suspect]
     Active Substance: ADALIMUMAB-AATY

REACTIONS (2)
  - Lung disorder [Unknown]
  - Intentional dose omission [Unknown]
